FAERS Safety Report 4719886-6 (Version None)
Quarter: 2005Q3

REPORT INFORMATION
  Report Type: 
  Country: None (occurrence: None)
  Receive Date: 20050721
  Receipt Date: 20050103
  Transmission Date: 20060218
  Serious: No
  Sender: FDA-Public Use
  Company Number: US-GLAXOSMITHKLINE-A0539087A

PATIENT
  Age: 61 Year
  Sex: Female

DRUGS (8)
  1. AVANDIA [Suspect]
     Dosage: 4MG PER DAY
     Route: 048
     Dates: start: 20041220
  2. AMARYL [Concomitant]
  3. ELAVIL [Concomitant]
  4. TENORMIN [Concomitant]
  5. MACROBID [Concomitant]
  6. PHENAZOPYRIDINE HCL TAB [Concomitant]
  7. ZESTRIL [Concomitant]
  8. LIPITOR [Concomitant]

REACTIONS (1)
  - HEARING IMPAIRED [None]
